FAERS Safety Report 7107715-5 (Version None)
Quarter: 2010Q4

REPORT INFORMATION
  Report Type: 
  Country: None (occurrence: None)
  Receive Date: 20101117
  Receipt Date: 20101112
  Transmission Date: 20110411
  Serious: Yes (Other)
  Sender: FDA-Public Use
  Company Number: US-BRISTOL-MYERS SQUIBB COMPANY-15375959

PATIENT
  Age: 79 Year
  Sex: Female

DRUGS (1)
  1. COUMADIN [Suspect]
     Indication: ATRIAL SEPTAL DEFECT
     Dosage: REDUCED TO 2.5MG,THERAPY DATES:9,1623,30AUG,13SEP,11,25OCT2010
     Route: 048
     Dates: start: 20100730

REACTIONS (2)
  - EMBOLIC STROKE [None]
  - PROTHROMBIN TIME RATIO ABNORMAL [None]
